FAERS Safety Report 4608748-0 (Version None)
Quarter: 2005Q1

REPORT INFORMATION
  Report Type: 
  Country: None (occurrence: None)
  Receive Date: 20050309
  Receipt Date: 20050222
  Transmission Date: 20050727
  Serious: Yes (Hospitalization)
  Sender: FDA-Public Use
  Company Number: GBS041216173

PATIENT
  Age: 82 Year
  Sex: Female

DRUGS (5)
  1. FORTEO [Suspect]
     Dosage: 20 UG DAY
     Dates: start: 20040829
  2. ASPIRIN [Concomitant]
  3. ALENDRONATE SODIUM [Concomitant]
  4. GTN [Concomitant]
  5. DOPAMINE [Concomitant]

REACTIONS (5)
  - CEREBRAL ISCHAEMIA [None]
  - CIRCULATORY COLLAPSE [None]
  - CONFUSIONAL STATE [None]
  - DEPRESSED LEVEL OF CONSCIOUSNESS [None]
  - LOSS OF CONSCIOUSNESS [None]
